FAERS Safety Report 8213037-1 (Version None)
Quarter: 2012Q1

REPORT INFORMATION
  Report Type: 
  Country: None (occurrence: None)
  Receive Date: 20120315
  Receipt Date: 20120307
  Transmission Date: 20120608
  Serious: Yes (Death, Hospitalization, Disabling)
  Sender: FDA-Public Use
  Company Number: DE-JNJFOC-20101107869

PATIENT
  Sex: Male
  Weight: 74 kg

DRUGS (12)
  1. METAMIZOL [Concomitant]
     Indication: BONE PAIN
     Dosage: DOSE = 130.0 UNITS NOT SPECIFIED
     Route: 048
     Dates: start: 20100928
  2. LEUPROLIDE ACETATE [Concomitant]
     Indication: HORMONE THERAPY
     Dosage: DOSE = 130.0 UNITS NOT SPECIFIED
     Route: 065
     Dates: start: 20091126
  3. UTK UNO [Concomitant]
     Indication: BENIGN PROSTATIC HYPERPLASIA
     Dosage: DOSE = 130.0 UNITS NOT SPECIFIED
     Route: 048
     Dates: start: 20050504
  4. CALCIUM-SANDOZ D OSTEO [Concomitant]
     Indication: METASTASES TO BONE
     Dosage: DOSE = 130.0 UNITS NOT SPECIFIED
     Route: 048
     Dates: start: 20090715
  5. ABIRATERONE ACETATE [Suspect]
     Indication: PROSTATE CANCER METASTATIC
     Route: 048
     Dates: start: 20100128, end: 20101015
  6. PREDNISOLONE [Suspect]
     Indication: PROSTATE CANCER METASTATIC
     Route: 048
     Dates: start: 20100128
  7. CIPROFLOXACIN [Concomitant]
     Indication: URINARY TRACT INFLAMMATION
     Dosage: DOSE = 130.0 UNITS NOT SPECIFIED
     Route: 048
     Dates: start: 20100928, end: 20101001
  8. FENTANYL [Concomitant]
     Indication: CANCER PAIN
     Dosage: START DATE = 08-NOV-2010
     Route: 062
     Dates: start: 20101101, end: 20101101
  9. METAMIZOL [Concomitant]
     Indication: MYALGIA
     Dosage: DOSE = 130.0 UNITS NOT SPECIFIED
     Route: 048
     Dates: start: 20100928
  10. FENTANYL [Concomitant]
     Route: 062
     Dates: start: 20101101
  11. ABIRATERONE ACETATE [Suspect]
     Route: 048
  12. ZOMETA [Concomitant]
     Indication: METASTASES TO BONE
     Dosage: DOSE = 130.0 UNITS NOT SPECIFIED
     Route: 042
     Dates: start: 20090527

REACTIONS (2)
  - DISEASE PROGRESSION [None]
  - EASTERN COOPERATIVE ONCOLOGY GROUP PERFORMANCE STATUS WORSENED [None]
